FAERS Safety Report 7314578-1 (Version None)
Quarter: 2011Q1

REPORT INFORMATION
  Report Type: 
  Country: None (occurrence: None)
  Receive Date: 20110225
  Receipt Date: 20101104
  Transmission Date: 20110831
  Serious: Yes (Hospitalization)
  Sender: FDA-Public Use
  Company Number: US-MYLANLABS-2010S1018530

PATIENT
  Age: 15 Year
  Sex: Female

DRUGS (2)
  1. AMNESTEEM [Suspect]
     Indication: ACNE
     Route: 048
     Dates: start: 20090924, end: 20091029
  2. CONTRACEPTIVE [Concomitant]

REACTIONS (2)
  - MOOD DISORDER DUE TO A GENERAL MEDICAL CONDITION [None]
  - DEPRESSION [None]
